FAERS Safety Report 22793672 (Version 4)
Quarter: 2025Q1

REPORT INFORMATION
  Report Type: Spontaneous
  Country: CA (occurrence: CA)
  Receive Date: 20230807
  Receipt Date: 20250324
  Transmission Date: 20250408
  Serious: Yes (Death, Life-Threatening, Hospitalization, Disabling, Other)
  Sender: MYLAN
  Company Number: CA-PFIZER INC-2018518605

PATIENT
  Age: 44 Year
  Sex: Female
  Weight: 63 kg

DRUGS (330)
  1. LYRICA [Suspect]
     Active Substance: PREGABALIN
     Indication: Rheumatoid arthritis
     Dosage: 300 MILLIGRAM, QD (1 EVERY 1 DAYS)
  2. LYRICA [Suspect]
     Active Substance: PREGABALIN
     Indication: Fibromyalgia
     Dosage: 150 MILLIGRAM, BID (2 EVERY 1 DAY)
  3. LYRICA [Suspect]
     Active Substance: PREGABALIN
     Dosage: 150 MILLIGRAM, BID
  4. PREGABALIN [Suspect]
     Active Substance: PREGABALIN
     Indication: Rheumatoid arthritis
     Dosage: 150 MILLIGRAM, QD
  5. PREGABALIN [Suspect]
     Active Substance: PREGABALIN
     Indication: Fibromyalgia
     Dosage: 300 MILLIGRAM, QD (1 EVERY 1 DAYS)
  6. PREGABALIN [Suspect]
     Active Substance: PREGABALIN
     Dosage: 150 MILLIGRAM, BID (2 EVERY 1 DAY)
  7. CELECOXIB [Suspect]
     Active Substance: CELECOXIB
     Indication: Product used for unknown indication
  8. LYRICA [Suspect]
     Active Substance: PREGABALIN
     Indication: Rheumatoid arthritis
     Dosage: 300 MILLIGRAM, QD (1 EVERY 1 DAYS)
  9. LYRICA [Suspect]
     Active Substance: PREGABALIN
     Dosage: 150 MILLIGRAM, BID (2 EVERY 1 DAY)
  10. PREGABALIN [Suspect]
     Active Substance: PREGABALIN
     Indication: Rheumatoid arthritis
     Dosage: 150 MILLIGRAM, QD (1 EVERY 1 DAYS)
  11. PREGABALIN [Suspect]
     Active Substance: PREGABALIN
     Indication: Fibromyalgia
  12. ADALIMUMAB [Suspect]
     Active Substance: ADALIMUMAB
     Indication: Rheumatoid arthritis
  13. ENBREL [Suspect]
     Active Substance: ETANERCEPT
     Indication: Rheumatoid arthritis
     Dosage: 50 MILLIGRAM, QW
     Dates: start: 200812, end: 201007
  14. ENBREL [Suspect]
     Active Substance: ETANERCEPT
     Indication: Psoriatic arthropathy
     Dosage: 50 MILLIGRAM, QW (50 MILLIGRAM, 1/WEEK)
     Dates: end: 201807
  15. ENBREL [Suspect]
     Active Substance: ETANERCEPT
     Dosage: 50 MILLIGRAM, QW
     Dates: start: 201807
  16. ENBREL [Suspect]
     Active Substance: ETANERCEPT
     Dosage: 50 GRAM, QD
  17. ENBREL [Suspect]
     Active Substance: ETANERCEPT
     Dosage: 50 MICROGRAM, QD
  18. ENBREL [Suspect]
     Active Substance: ETANERCEPT
     Dosage: 40 MILLIGRAM, QW (1 EVERY 1 WEEKS)
  19. ENBREL [Suspect]
     Active Substance: ETANERCEPT
     Dosage: 50 MILLIGRAM, QD (1 EVERY 1 DAYS)
  20. ENBREL [Suspect]
     Active Substance: ETANERCEPT
     Dosage: 50 MILLIGRAM, QW (1 EVERY 1 WEEKS)
  21. ENBREL [Suspect]
     Active Substance: ETANERCEPT
  22. ENBREL [Suspect]
     Active Substance: ETANERCEPT
  23. ENBREL [Suspect]
     Active Substance: ETANERCEPT
     Dosage: 50 MILLIGRAM, QW (1 EVERY 1 WEEKS)
  24. ENBREL [Suspect]
     Active Substance: ETANERCEPT
     Dosage: 20 MILLIGRAM, QW (1 EVERY 1 WEEKS)
  25. ENBREL [Suspect]
     Active Substance: ETANERCEPT
     Dosage: 50 GRAM, QD (1 EVERY 1 DAYS)
  26. ENBREL [Suspect]
     Active Substance: ETANERCEPT
     Dosage: 50 MILLIGRAM, QW (1 EVERY 1 WEEKS)
  27. ENBREL [Suspect]
     Active Substance: ETANERCEPT
     Dosage: 50 MILLIGRAM, QW (1 EVERY 1 WEEKS)
  28. ENBREL [Suspect]
     Active Substance: ETANERCEPT
     Dosage: 50 MICROGRAM, QD (1 EVERY 1 DAYS)
  29. ENBREL [Suspect]
     Active Substance: ETANERCEPT
     Dosage: 50 GRAM, QD (1 EVERY 1 DAYS)
  30. DEPO-MEDROL [Suspect]
     Active Substance: METHYLPREDNISOLONE ACETATE
     Indication: Rheumatoid arthritis
     Dosage: 180 MILLIGRAM, QD
  31. DEPO-MEDROL [Suspect]
     Active Substance: METHYLPREDNISOLONE ACETATE
  32. DEPO-MEDROL [Suspect]
     Active Substance: METHYLPREDNISOLONE ACETATE
  33. DEPO-MEDROL [Suspect]
     Active Substance: METHYLPREDNISOLONE ACETATE
     Indication: Rheumatoid arthritis
  34. ESOMEPRAZOLE MAGNESIUM [Suspect]
     Active Substance: ESOMEPRAZOLE MAGNESIUM
     Indication: Rheumatoid arthritis
  35. METHOTREXATE SODIUM [Suspect]
     Active Substance: METHOTREXATE SODIUM
     Indication: Rheumatoid arthritis
     Dosage: 20 MILLIGRAM, QW
     Dates: start: 2007, end: 2008
  36. METHOTREXATE SODIUM [Suspect]
     Active Substance: METHOTREXATE SODIUM
     Dosage: 20 MILLIGRAM, QW
     Dates: start: 2008, end: 2008
  37. METHOTREXATE SODIUM [Suspect]
     Active Substance: METHOTREXATE SODIUM
     Dosage: 25 MILLIGRAM, QW
  38. METHOTREXATE SODIUM [Suspect]
     Active Substance: METHOTREXATE SODIUM
  39. METHOTREXATE SODIUM [Suspect]
     Active Substance: METHOTREXATE SODIUM
  40. METHOTREXATE SODIUM [Suspect]
     Active Substance: METHOTREXATE SODIUM
     Dosage: 20 MILLIGRAM, QW
     Dates: end: 2008
  41. METHOTREXATE SODIUM [Suspect]
     Active Substance: METHOTREXATE SODIUM
     Dosage: 20 MILLIGRAM, QW
     Dates: start: 2008, end: 2008
  42. METHOTREXATE SODIUM [Suspect]
     Active Substance: METHOTREXATE SODIUM
     Indication: Rheumatoid arthritis
     Dosage: 20 MILLIGRAM, QW (20 MILLIGRA, 1/WEEK
     Dates: start: 2008
  43. METHOTREXATE SODIUM [Suspect]
     Active Substance: METHOTREXATE SODIUM
  44. METHYLPREDNISOLONE SODIUM SUCCINATE [Suspect]
     Active Substance: METHYLPREDNISOLONE SODIUM SUCCINATE
     Indication: Rheumatoid arthritis
     Dosage: UNK, QD (1 EVERY1 DAYS)
  45. METHYLPREDNISOLONE SODIUM SUCCINATE [Suspect]
     Active Substance: METHYLPREDNISOLONE SODIUM SUCCINATE
     Indication: Inflammation
  46. PANTOPRAZOLE SODIUM [Suspect]
     Active Substance: PANTOPRAZOLE SODIUM
     Indication: Product used for unknown indication
  47. PANTOPRAZOLE SODIUM [Suspect]
     Active Substance: PANTOPRAZOLE SODIUM
  48. PANTOPRAZOLE [Suspect]
     Active Substance: PANTOPRAZOLE
     Indication: Product used for unknown indication
  49. SULFASALAZINE [Suspect]
     Active Substance: SULFASALAZINE
     Indication: Rheumatoid arthritis
     Dosage: 1 GRAM, QD, (1 IN 24 HRS)
     Dates: start: 20071221, end: 20080211
  50. SULFASALAZINE [Suspect]
     Active Substance: SULFASALAZINE
     Dosage: 1000 MILLIGRAM, QD (1000 MG, 1X/DAY)
  51. SULFASALAZINE [Suspect]
     Active Substance: SULFASALAZINE
     Dosage: 1 GRAM, BID
  52. SULFASALAZINE [Suspect]
     Active Substance: SULFASALAZINE
     Dosage: 1 MILLIGRAM, QD
  53. SULFASALAZINE [Suspect]
     Active Substance: SULFASALAZINE
     Dosage: 1000 MILLIGRAM, QW (1 EVERY 1 WEEKS)
  54. SULFASALAZINE [Suspect]
     Active Substance: SULFASALAZINE
  55. SULFASALAZINE [Suspect]
     Active Substance: SULFASALAZINE
     Dosage: 1000 MILLIGRAM, BID
  56. SULFASALAZINE [Suspect]
     Active Substance: SULFASALAZINE
     Dosage: 1 GRAM, QD  (1 EVERY 1 DAYS)
  57. XELJANZ [Suspect]
     Active Substance: TOFACITINIB CITRATE
     Indication: Rheumatoid arthritis
     Dosage: 10 MILLIGRAM, QD (1 EVERY 1 DAYS)
  58. XELJANZ [Suspect]
     Active Substance: TOFACITINIB CITRATE
     Dosage: 5 MILLIGRAM, BID
     Dates: start: 20140927
  59. XELJANZ [Suspect]
     Active Substance: TOFACITINIB CITRATE
     Dosage: 5 MILLIGRAM, BID (5 MG, 2X/DAY)
     Dates: start: 20140927
  60. XELJANZ [Suspect]
     Active Substance: TOFACITINIB CITRATE
     Dosage: 10 MILLIGRAM, QD
  61. XELJANZ [Suspect]
     Active Substance: TOFACITINIB CITRATE
     Dosage: 2 MILLIGRAM, BID (2 EVERY 1 DAYS)
  62. XELJANZ [Suspect]
     Active Substance: TOFACITINIB CITRATE
     Dosage: 2 MILLIGRAM, QD (1 EVERY 1 DAYS)
  63. XELJANZ [Suspect]
     Active Substance: TOFACITINIB CITRATE
     Dosage: 2 DOSAGE FORM, QD (1 EVERY 1 DAYS)
     Dates: start: 20140927
  64. XELJANZ [Suspect]
     Active Substance: TOFACITINIB CITRATE
  65. XELJANZ [Suspect]
     Active Substance: TOFACITINIB CITRATE
  66. XELJANZ [Suspect]
     Active Substance: TOFACITINIB CITRATE
     Dosage: 2 MILLIGRAM, QD
  67. XELJANZ [Suspect]
     Active Substance: TOFACITINIB CITRATE
     Dosage: 2 MILLIGRAM, QD (1 EVERY 1 DAYS)
  68. XELJANZ [Suspect]
     Active Substance: TOFACITINIB CITRATE
     Dosage: 5 MILLIGRAM, BID (2 EVERY 1 DAYS)
  69. XELJANZ [Suspect]
     Active Substance: TOFACITINIB CITRATE
     Dosage: 2 DOSAGE FORM, QD (1 EVERY 1 DAYS)
  70. XELJANZ [Suspect]
     Active Substance: TOFACITINIB CITRATE
  71. XELJANZ [Suspect]
     Active Substance: TOFACITINIB CITRATE
     Dosage: 2 MILLIGRAM, BID (1 EVERY 12 HOURS)
  72. XELJANZ [Suspect]
     Active Substance: TOFACITINIB CITRATE
     Dosage: 5 MILLIGRAM, BID (1 EVERY 12 HOURS)
  73. METHYLPREDNISOLONE ACETATE [Suspect]
     Active Substance: METHYLPREDNISOLONE ACETATE
     Indication: Rheumatoid arthritis
  74. METHYLPREDNISOLONE ACETATE [Suspect]
     Active Substance: METHYLPREDNISOLONE ACETATE
     Indication: Inflammation
  75. AMOXICILLIN [Suspect]
     Active Substance: AMOXICILLIN
     Indication: Product used for unknown indication
  76. RITUXIMAB [Suspect]
     Active Substance: RITUXIMAB
     Indication: Rheumatoid arthritis
  77. RITUXIMAB [Suspect]
     Active Substance: RITUXIMAB
  78. RITUXIMAB [Suspect]
     Active Substance: RITUXIMAB
  79. ALENDRONIC ACID [Suspect]
     Active Substance: ALENDRONIC ACID
     Indication: Product used for unknown indication
  80. ALENDRONIC ACID [Suspect]
     Active Substance: ALENDRONIC ACID
  81. ALENDRONIC ACID [Suspect]
     Active Substance: ALENDRONIC ACID
  82. ALENDRONIC ACID [Suspect]
     Active Substance: ALENDRONIC ACID
  83. HUMIRA [Suspect]
     Active Substance: ADALIMUMAB
     Indication: Drug therapy
     Dates: start: 201008, end: 201312
  84. HUMIRA [Suspect]
     Active Substance: ADALIMUMAB
     Indication: Rheumatoid arthritis
  85. HUMIRA [Suspect]
     Active Substance: ADALIMUMAB
     Indication: Psoriatic arthropathy
  86. HUMIRA [Suspect]
     Active Substance: ADALIMUMAB
  87. IMURAN [Suspect]
     Active Substance: AZATHIOPRINE
     Indication: Product used for unknown indication
  88. IMURAN [Suspect]
     Active Substance: AZATHIOPRINE
     Dosage: 150 MILLIGRAM, BID (2 EVERY 1 DAY)(300MG, AS 150MG TWICE DAILY)
  89. IMURAN [Suspect]
     Active Substance: AZATHIOPRINE
  90. AZATHIOPRINE [Suspect]
     Active Substance: AZATHIOPRINE
     Indication: Rheumatoid arthritis
     Dosage: 150 MG, 2X/DAY
  91. AZATHIOPRINE [Suspect]
     Active Substance: AZATHIOPRINE
  92. AZATHIOPRINE [Suspect]
     Active Substance: AZATHIOPRINE
  93. AZATHIOPRINE [Suspect]
     Active Substance: AZATHIOPRINE
  94. AZATHIOPRINE [Suspect]
     Active Substance: AZATHIOPRINE
  95. MELOXICAM [Suspect]
     Active Substance: MELOXICAM
     Indication: Rheumatoid arthritis
     Dosage: 150 MILLIGRAM, QD (1 EVERY 1 DAYS)
  96. MELOXICAM [Suspect]
     Active Substance: MELOXICAM
  97. MELOXICAM [Suspect]
     Active Substance: MELOXICAM
     Dosage: 150 MILLIGRAM, QD
  98. MELOXICAM [Suspect]
     Active Substance: MELOXICAM
  99. MELOXICAM [Suspect]
     Active Substance: MELOXICAM
  100. NAPROXEN SODIUM [Suspect]
     Active Substance: NAPROXEN SODIUM
     Indication: Product used for unknown indication
     Dosage: 500 MILLIGRAM, BID
     Dates: start: 2011
  101. NAPROXEN SODIUM [Suspect]
     Active Substance: NAPROXEN SODIUM
     Dosage: 500 MILLIGRAM, BID
  102. NAPROXEN SODIUM [Suspect]
     Active Substance: NAPROXEN SODIUM
     Dosage: 1000 MILLIGRAM, QD
  103. NAPROXEN SODIUM [Suspect]
     Active Substance: NAPROXEN SODIUM
     Dosage: 250 MILLIGRAM, BID
  104. NAPROXEN SODIUM [Suspect]
     Active Substance: NAPROXEN SODIUM
     Dosage: 500 MILLIGRAM, BID
     Dates: start: 2011
  105. NAPROXEN SODIUM [Suspect]
     Active Substance: NAPROXEN SODIUM
     Dosage: 500 MILLIGRAM, BID
     Dates: start: 2011
  106. NAPROXEN SODIUM [Suspect]
     Active Substance: NAPROXEN SODIUM
  107. NAPROXEN SODIUM [Suspect]
     Active Substance: NAPROXEN SODIUM
     Dosage: 500 MILLIGRAM, QD
  108. NAPROXEN SODIUM [Suspect]
     Active Substance: NAPROXEN SODIUM
     Dosage: 500 MILLIGRAM, BID
  109. NAPROXEN SODIUM [Suspect]
     Active Substance: NAPROXEN SODIUM
     Dosage: 1000 MILLIGRAM, QD
  110. NAPROXEN SODIUM [Suspect]
     Active Substance: NAPROXEN SODIUM
     Dosage: 250 MILLIGRAM, BID
  111. NAPROXEN SODIUM [Suspect]
     Active Substance: NAPROXEN SODIUM
  112. NAPROXEN SODIUM [Suspect]
     Active Substance: NAPROXEN SODIUM
  113. NAPROXEN SODIUM [Suspect]
     Active Substance: NAPROXEN SODIUM
  114. NAPROXEN SODIUM [Suspect]
     Active Substance: NAPROXEN SODIUM
  115. NAPROXEN SODIUM [Suspect]
     Active Substance: NAPROXEN SODIUM
     Dosage: 500 MILLIGRAM, QD
  116. NAPROXEN SODIUM [Suspect]
     Active Substance: NAPROXEN SODIUM
  117. PREDNISONE [Suspect]
     Active Substance: PREDNISONE
     Indication: Rheumatoid arthritis
     Dosage: 150 MG, QD
  118. PREDNISONE [Suspect]
     Active Substance: PREDNISONE
     Dosage: 15 MG, QD
     Dates: start: 2012
  119. PREDNISONE [Suspect]
     Active Substance: PREDNISONE
  120. RANITIDINE [Suspect]
     Active Substance: RANITIDINE
     Indication: Product used for unknown indication
     Dosage: 300 MILLIGRAM, QD (1 EVERY 1 DAYS)
     Dates: start: 2012
  121. RANITIDINE [Suspect]
     Active Substance: RANITIDINE
     Dosage: 150 MILLIGRAM, BID (2 EVERY 1 DAY)
  122. RANITIDINE [Suspect]
     Active Substance: RANITIDINE
  123. RANITIDINE [Suspect]
     Active Substance: RANITIDINE
     Dosage: 15 MILLIGRAM, BID (2 EVERY 1 DAYS)
  124. RANITIDINE [Suspect]
     Active Substance: RANITIDINE
     Dosage: 300 MILLIGRAM, QD
  125. RANITIDINE [Suspect]
     Active Substance: RANITIDINE
     Dosage: 300 MILLIGRAM, QW (1 EVERY 1 WEEKS)
  126. RANITIDINE [Suspect]
     Active Substance: RANITIDINE
  127. ACETAMINOPHEN\OXYCODONE HYDROCHLORIDE [Suspect]
     Active Substance: ACETAMINOPHEN\OXYCODONE HYDROCHLORIDE
     Indication: Product used for unknown indication
  128. ACETAMINOPHEN\OXYCODONE HYDROCHLORIDE [Suspect]
     Active Substance: ACETAMINOPHEN\OXYCODONE HYDROCHLORIDE
  129. ACETAMINOPHEN\OXYCODONE HYDROCHLORIDE [Suspect]
     Active Substance: ACETAMINOPHEN\OXYCODONE HYDROCHLORIDE
  130. ACETAMINOPHEN\OXYCODONE HYDROCHLORIDE [Suspect]
     Active Substance: ACETAMINOPHEN\OXYCODONE HYDROCHLORIDE
  131. ACETAMINOPHEN\OXYCODONE HYDROCHLORIDE [Suspect]
     Active Substance: ACETAMINOPHEN\OXYCODONE HYDROCHLORIDE
  132. ACETAMINOPHEN\OXYCODONE HYDROCHLORIDE [Suspect]
     Active Substance: ACETAMINOPHEN\OXYCODONE HYDROCHLORIDE
     Indication: Product used for unknown indication
  133. METHYLPREDNISOLONE SODIUM SUCCINATE [Suspect]
     Active Substance: METHYLPREDNISOLONE SODIUM SUCCINATE
     Indication: Rheumatoid arthritis
     Dosage: UNK, QD(ONE EVERY ONE DAY)
  134. METHYLPREDNISOLONE SODIUM SUCCINATE [Suspect]
     Active Substance: METHYLPREDNISOLONE SODIUM SUCCINATE
     Indication: Inflammation
  135. SEPTRA [Suspect]
     Active Substance: SULFAMETHOXAZOLE\TRIMETHOPRIM
     Indication: Product used for unknown indication
     Dates: start: 20071221, end: 20180211
  136. SEPTRA [Suspect]
     Active Substance: SULFAMETHOXAZOLE\TRIMETHOPRIM
  137. VIMOVO [Suspect]
     Active Substance: ESOMEPRAZOLE MAGNESIUM\NAPROXEN
     Indication: Product used for unknown indication
  138. VIMOVO [Suspect]
     Active Substance: ESOMEPRAZOLE MAGNESIUM\NAPROXEN
  139. AMITRIPTYLINE HYDROCHLORIDE [Suspect]
     Active Substance: AMITRIPTYLINE HYDROCHLORIDE
     Indication: Product used for unknown indication
     Dosage: 75 MILLIGRAM, QD
     Dates: start: 2011
  140. AMITRIPTYLINE HYDROCHLORIDE [Suspect]
     Active Substance: AMITRIPTYLINE HYDROCHLORIDE
     Dosage: 75 MILLIGRAM, QD
  141. AMITRIPTYLINE HYDROCHLORIDE [Suspect]
     Active Substance: AMITRIPTYLINE HYDROCHLORIDE
     Dosage: 75 MILLIGRAM, QD
  142. AMITRIPTYLINE HYDROCHLORIDE [Suspect]
     Active Substance: AMITRIPTYLINE HYDROCHLORIDE
  143. ALENDRONATE SODIUM [Suspect]
     Active Substance: ALENDRONATE SODIUM
     Indication: Product used for unknown indication
  144. ALENDRONATE SODIUM [Suspect]
     Active Substance: ALENDRONATE SODIUM
  145. ALENDRONATE SODIUM [Suspect]
     Active Substance: ALENDRONATE SODIUM
  146. BACTRIM [Suspect]
     Active Substance: SULFAMETHOXAZOLE\TRIMETHOPRIM
     Indication: Product used for unknown indication
  147. MELOXICAM [Suspect]
     Active Substance: MELOXICAM
     Indication: Rheumatoid arthritis
     Dosage: 150 MILLIGRAM, QD
  148. MELOXICAM [Suspect]
     Active Substance: MELOXICAM
  149. NAPROXEN [Suspect]
     Active Substance: NAPROXEN
     Indication: Product used for unknown indication
     Dosage: 500 MILLIGRAM, BID
     Dates: start: 2011
  150. NAPROXEN [Suspect]
     Active Substance: NAPROXEN
     Dosage: 250 MG, BID
  151. NAPROXEN [Suspect]
     Active Substance: NAPROXEN
     Dosage: 500 MG, BID
  152. NAPROXEN [Suspect]
     Active Substance: NAPROXEN
     Dosage: 500 MG, BID
  153. NAPROXEN [Suspect]
     Active Substance: NAPROXEN
     Dosage: 1000 MILLIGRAM, QD
  154. NAPROXEN [Suspect]
     Active Substance: NAPROXEN
     Dosage: 500 MILLIGRAM, BID
  155. NAPROXEN [Suspect]
     Active Substance: NAPROXEN
     Dosage: 500 MILLIGRAM, BID
  156. PREDNISONE [Suspect]
     Active Substance: PREDNISONE
     Indication: Rheumatoid arthritis
     Dosage: 15 MILLIGRAM, QD
     Dates: start: 2012
  157. PREDNISONE [Suspect]
     Active Substance: PREDNISONE
     Indication: Bursitis
  158. PREDNISONE [Suspect]
     Active Substance: PREDNISONE
     Dosage: 150 MILLIGRAM, QD
  159. PREDNISONE [Suspect]
     Active Substance: PREDNISONE
  160. PREDNISONE [Suspect]
     Active Substance: PREDNISONE
     Dosage: 150 MILLIGRAM, QD
  161. PREDNISONE [Suspect]
     Active Substance: PREDNISONE
     Dosage: 150 MILLIGRAM, QD
  162. AMITRIPTYLINE [Suspect]
     Active Substance: AMITRIPTYLINE
     Indication: Pain
     Dosage: 75 MILLIGRAM, QD
     Dates: start: 2011
  163. AMITRIPTYLINE [Suspect]
     Active Substance: AMITRIPTYLINE
  164. ACETAMINOPHEN\OXYCODONE HYDROCHLORIDE [Suspect]
     Active Substance: ACETAMINOPHEN\OXYCODONE HYDROCHLORIDE
     Indication: Product used for unknown indication
  165. ACETAMINOPHEN\OXYCODONE HYDROCHLORIDE [Suspect]
     Active Substance: ACETAMINOPHEN\OXYCODONE HYDROCHLORIDE
  166. ACETAMINOPHEN\OXYCODONE HYDROCHLORIDE [Suspect]
     Active Substance: ACETAMINOPHEN\OXYCODONE HYDROCHLORIDE
  167. AMITRIPTYLINE PAMOATE [Suspect]
     Active Substance: AMITRIPTYLINE PAMOATE
     Indication: Product used for unknown indication
  168. AMITRIPTYLINE PAMOATE [Suspect]
     Active Substance: AMITRIPTYLINE PAMOATE
     Dosage: 75 MILLIGRAM, QD
  169. ACETAMINOPHEN\OXYCODONE HYDROCHLORIDE [Suspect]
     Active Substance: ACETAMINOPHEN\OXYCODONE HYDROCHLORIDE
     Indication: Product used for unknown indication
  170. SULFAMETHOXAZOLE\TRIMETHOPRIM [Suspect]
     Active Substance: SULFAMETHOXAZOLE\TRIMETHOPRIM
     Indication: Product used for unknown indication
  171. TRIMETHOPRIM [Suspect]
     Active Substance: TRIMETHOPRIM
     Indication: Product used for unknown indication
  172. ESOMEPRAZOLE MAGNESIUM [Suspect]
     Active Substance: ESOMEPRAZOLE MAGNESIUM
     Indication: Product used for unknown indication
  173. ESOMEPRAZOLE MAGNESIUM [Suspect]
     Active Substance: ESOMEPRAZOLE MAGNESIUM
  174. ESOMEPRAZOLE MAGNESIUM\NAPROXEN [Suspect]
     Active Substance: ESOMEPRAZOLE MAGNESIUM\NAPROXEN
     Indication: Product used for unknown indication
  175. ACETAMINOPHEN [Suspect]
     Active Substance: ACETAMINOPHEN
     Indication: Product used for unknown indication
  176. ACETAMINOPHEN [Suspect]
     Active Substance: ACETAMINOPHEN
  177. AMITRIPTYLINE [Suspect]
     Active Substance: AMITRIPTYLINE
     Indication: Product used for unknown indication
     Dosage: 75 MILLIGRAM, QD (1 EVERY 1 DAYS)
  178. ALENDRONATE [Suspect]
     Active Substance: ALENDRONATE SODIUM
     Indication: Product used for unknown indication
  179. OXYCODONE [Suspect]
     Active Substance: OXYCODONE
     Indication: Product used for unknown indication
  180. OXYCODONE AND ACETAMINOPHEN [Suspect]
     Active Substance: ACETAMINOPHEN\OXYCODONE HYDROCHLORIDE
     Indication: Product used for unknown indication
  181. OXYCODONE AND ACETAMINOPHEN [Suspect]
     Active Substance: ACETAMINOPHEN\OXYCODONE HYDROCHLORIDE
  182. RANITIDINE HYDROCHLORIDE [Suspect]
     Active Substance: RANITIDINE HYDROCHLORIDE
     Indication: Product used for unknown indication
     Dosage: 300 MILLIGRAM, QW (300 MILLIGRAM, 1/WEEK)
     Dates: start: 2012
  183. RANITIDINE HYDROCHLORIDE [Suspect]
     Active Substance: RANITIDINE HYDROCHLORIDE
     Dosage: 300 MILLIGRAM, QD
  184. RANITIDINE HYDROCHLORIDE [Suspect]
     Active Substance: RANITIDINE HYDROCHLORIDE
     Dosage: 300 MILLIGRAM, QD
  185. RANITIDINE HYDROCHLORIDE [Suspect]
     Active Substance: RANITIDINE HYDROCHLORIDE
     Dosage: 150 MILLIGRAM, BID
  186. RANITIDINE HYDROCHLORIDE [Suspect]
     Active Substance: RANITIDINE HYDROCHLORIDE
     Dosage: 15 MILLIGRAM, BID
  187. RANITIDINE HYDROCHLORIDE [Suspect]
     Active Substance: RANITIDINE HYDROCHLORIDE
  188. ELAVIL [Suspect]
     Active Substance: AMITRIPTYLINE HYDROCHLORIDE
     Indication: Product used for unknown indication
     Dosage: 75 MILLIGRAM, QD
  189. FOSAMAX [Suspect]
     Active Substance: ALENDRONATE SODIUM
     Indication: Product used for unknown indication
  190. GOLD [Suspect]
     Active Substance: GOLD
     Indication: Rheumatoid arthritis
  191. CIMZIA [Suspect]
     Active Substance: CERTOLIZUMAB PEGOL
     Indication: Rheumatoid arthritis
  192. SIMPONI [Suspect]
     Active Substance: GOLIMUMAB
     Indication: Rheumatoid arthritis
  193. REMICADE [Suspect]
     Active Substance: INFLIXIMAB
     Indication: Rheumatoid arthritis
  194. HYDROXYCHLOROQUINE SULFATE [Suspect]
     Active Substance: HYDROXYCHLOROQUINE SULFATE
     Indication: Product used for unknown indication
  195. HYDROXYCHLOROQUINE SULFATE [Suspect]
     Active Substance: HYDROXYCHLOROQUINE SULFATE
     Dosage: 400 MILLIGRAM, QD
  196. HYDROXYCHLOROQUINE SULFATE [Suspect]
     Active Substance: HYDROXYCHLOROQUINE SULFATE
  197. HYDROXYCHLOROQUINE SULFATE [Suspect]
     Active Substance: HYDROXYCHLOROQUINE SULFATE
  198. HYDROXYCHLOROQUINE SULFATE [Suspect]
     Active Substance: HYDROXYCHLOROQUINE SULFATE
  199. LEFLUNOMIDE [Suspect]
     Active Substance: LEFLUNOMIDE
     Indication: Rheumatoid arthritis
  200. LEFLUNOMIDE [Suspect]
     Active Substance: LEFLUNOMIDE
  201. ARAVA [Suspect]
     Active Substance: LEFLUNOMIDE
     Indication: Product used for unknown indication
  202. ARAVA [Suspect]
     Active Substance: LEFLUNOMIDE
  203. ORENCIA [Suspect]
     Active Substance: ABATACEPT
     Indication: Rheumatoid arthritis
     Dosage: 125 MILLIGRAM, QD (1 EVERY 1 DAYS)
  204. ORENCIA [Suspect]
     Active Substance: ABATACEPT
  205. ORENCIA [Suspect]
     Active Substance: ABATACEPT
  206. ORENCIA [Suspect]
     Active Substance: ABATACEPT
  207. ACTEMRA [Suspect]
     Active Substance: TOCILIZUMAB
     Indication: Rheumatoid arthritis
  208. ACTEMRA [Suspect]
     Active Substance: TOCILIZUMAB
     Dosage: 160 MILLIGRAM, QW
  209. ACTEMRA [Suspect]
     Active Substance: TOCILIZUMAB
  210. HYDROXYCHLOROQUINE [Suspect]
     Active Substance: HYDROXYCHLOROQUINE
     Indication: Product used for unknown indication
  211. RIABNI [Suspect]
     Active Substance: RITUXIMAB-ARRX
     Indication: Rheumatoid arthritis
  212. RIABNI [Suspect]
     Active Substance: RITUXIMAB-ARRX
  213. RIABNI [Suspect]
     Active Substance: RITUXIMAB-ARRX
  214. ADALIMUMAB [Suspect]
     Active Substance: ADALIMUMAB
     Indication: Product used for unknown indication
  215. ETHYLENEDIAMINE [Suspect]
     Active Substance: ETHYLENEDIAMINE
     Indication: Product used for unknown indication
  216. HUMAN IMMUNOGLOBULIN G [Suspect]
     Active Substance: HUMAN IMMUNOGLOBULIN G
     Indication: Product used for unknown indication
  217. HYDROXYCHLOROQUINE DIPHOSPHATE [Suspect]
     Active Substance: HYDROXYCHLOROQUINE DIPHOSPHATE
     Indication: Product used for unknown indication
  218. ADALIMUMAB [Suspect]
     Active Substance: ADALIMUMAB
     Indication: Rheumatoid arthritis
  219. ADALIMUMAB [Suspect]
     Active Substance: ADALIMUMAB
  220. AMITRIPTYLINE HYDROCHLORIDE [Suspect]
     Active Substance: AMITRIPTYLINE HYDROCHLORIDE
     Indication: Product used for unknown indication
     Dosage: 75 MILLIGRAM, QD
  221. AMITRIPTYLINE HYDROCHLORIDE [Suspect]
     Active Substance: AMITRIPTYLINE HYDROCHLORIDE
  222. ALLOPURINOL [Suspect]
     Active Substance: ALLOPURINOL
     Indication: Product used for unknown indication
     Dosage: 75 MILLIGRAM, QD
  223. BACTRIM [Suspect]
     Active Substance: SULFAMETHOXAZOLE\TRIMETHOPRIM
     Indication: Product used for unknown indication
  224. BACTRIM [Suspect]
     Active Substance: SULFAMETHOXAZOLE\TRIMETHOPRIM
  225. ELAVIL [Suspect]
     Active Substance: AMITRIPTYLINE HYDROCHLORIDE
     Indication: Product used for unknown indication
     Dosage: 75 MILLIGRAM, QD (1 EVERY 1 DAYS)
  226. ENBREL [Suspect]
     Active Substance: ETANERCEPT
     Indication: Rheumatoid arthritis
     Dosage: 50 MICROGRAM, QW
  227. ENBREL [Suspect]
     Active Substance: ETANERCEPT
     Dosage: 50 GRAM, QD
  228. ESOMEPRAZOLE MAGNESIUM\NAPROXEN [Suspect]
     Active Substance: ESOMEPRAZOLE MAGNESIUM\NAPROXEN
     Indication: Product used for unknown indication
  229. ESOMEPRAZOLE MAGNESIUM\NAPROXEN [Suspect]
     Active Substance: ESOMEPRAZOLE MAGNESIUM\NAPROXEN
  230. ESOMEPRAZOLE [Suspect]
     Active Substance: ESOMEPRAZOLE
     Indication: Product used for unknown indication
  231. IMURAN [Suspect]
     Active Substance: AZATHIOPRINE
     Indication: Product used for unknown indication
  232. LEFLUNOMIDE [Suspect]
     Active Substance: LEFLUNOMIDE
     Indication: Rheumatoid arthritis
  233. MELOXICAM [Suspect]
     Active Substance: MELOXICAM
     Indication: Rheumatoid arthritis
     Dosage: 150 MILLIGRAM, QD
  234. MELOXICAM [Suspect]
     Active Substance: MELOXICAM
  235. PANTOPRAZOLE SODIUM [Suspect]
     Active Substance: PANTOPRAZOLE SODIUM
     Indication: Product used for unknown indication
  236. PANTOPRAZOLE SODIUM [Suspect]
     Active Substance: PANTOPRAZOLE SODIUM
  237. PANTOPRAZOLE SODIUM [Suspect]
     Active Substance: PANTOPRAZOLE SODIUM
     Dosage: UNK, QD
  238. REMICADE [Suspect]
     Active Substance: INFLIXIMAB
     Indication: Rheumatoid arthritis
  239. TRIMETHOPRIM [Suspect]
     Active Substance: TRIMETHOPRIM
     Indication: Product used for unknown indication
  240. CALCIUM CARBONATE [Suspect]
     Active Substance: CALCIUM CARBONATE
     Indication: Product used for unknown indication
  241. DOXYCYCLINE HYCLATE [Suspect]
     Active Substance: DOXYCYCLINE HYCLATE
     Indication: Product used for unknown indication
  242. FOLIC ACID [Suspect]
     Active Substance: FOLIC ACID
     Indication: Product used for unknown indication
  243. FOLIC ACID [Suspect]
     Active Substance: FOLIC ACID
  244. FOLIC ACID [Suspect]
     Active Substance: FOLIC ACID
  245. FOLIC ACID [Suspect]
     Active Substance: FOLIC ACID
  246. FOLIC ACID [Suspect]
     Active Substance: FOLIC ACID
  247. FOLIC ACID [Suspect]
     Active Substance: FOLIC ACID
  248. HUMIRA [Suspect]
     Active Substance: ADALIMUMAB
     Indication: Drug therapy
  249. HUMIRA [Suspect]
     Active Substance: ADALIMUMAB
     Indication: Rheumatoid arthritis
  250. HUMIRA [Suspect]
     Active Substance: ADALIMUMAB
     Indication: Psoriatic arthropathy
  251. HYDROCORTISONE SODIUM SUCCINATE [Suspect]
     Active Substance: HYDROCORTISONE SODIUM SUCCINATE
     Indication: Product used for unknown indication
  252. INFLIXIMAB [Suspect]
     Active Substance: INFLIXIMAB
     Indication: Product used for unknown indication
  253. METHOTREXATE [Suspect]
     Active Substance: METHOTREXATE
     Indication: Rheumatoid arthritis
     Dosage: 20 MILLIGRAM, QW (1 EVERY 1 WEEKS)
  254. METHOTREXATE [Suspect]
     Active Substance: METHOTREXATE
     Dosage: 20 MILLIGRAM, QW (1 EVERY 1 WEEKS)
  255. METHOTREXATE [Suspect]
     Active Substance: METHOTREXATE
  256. METHOTREXATE [Suspect]
     Active Substance: METHOTREXATE
     Dosage: 15 MILLIGRAM, QW (1 EVERY 1 WEEKS)
  257. METHOTREXATE [Suspect]
     Active Substance: METHOTREXATE
     Dosage: 25 MILLIGRAM, QW (1 EVERY 1 WEEKS)
  258. METHOTREXATE [Suspect]
     Active Substance: METHOTREXATE
  259. METHOTREXATE [Suspect]
     Active Substance: METHOTREXATE
  260. METHOTREXATE [Suspect]
     Active Substance: METHOTREXATE
  261. METHOTREXATE [Suspect]
     Active Substance: METHOTREXATE
     Dosage: 20 MILLIGRAM, QW (1 EVERY 1 WEEKS)
  262. METHOTREXATE [Suspect]
     Active Substance: METHOTREXATE
  263. METHOTREXATE [Suspect]
     Active Substance: METHOTREXATE
  264. METHOTREXATE [Suspect]
     Active Substance: METHOTREXATE
     Indication: Rheumatoid arthritis
  265. METHOTREXATE [Suspect]
     Active Substance: METHOTREXATE
     Dosage: 20 MILLIGRAM, QW (1 EVERY 1 WEEKS)
  266. METHYLPREDNISOLONE SODIUM SUCCINATE [Suspect]
     Active Substance: METHYLPREDNISOLONE SODIUM SUCCINATE
     Indication: Rheumatoid arthritis
  267. METHYLPREDNISOLONE SODIUM SUCCINATE [Suspect]
     Active Substance: METHYLPREDNISOLONE SODIUM SUCCINATE
     Indication: Inflammation
  268. NAPROXEN [Suspect]
     Active Substance: NAPROXEN
     Indication: Rheumatoid arthritis
     Dosage: 250 MILLIGRAM, BID (2 EVERY 1 DAYS)
  269. NAPROXEN [Suspect]
     Active Substance: NAPROXEN
     Indication: Inflammation
     Dosage: 500 MILLIGRAM, BID (2 EVERY 1 DAYS)
  270. NAPROXEN [Suspect]
     Active Substance: NAPROXEN
     Indication: Bursitis
     Dosage: 1000 MILLIGRAM, QD (1 EVERY 1 DAYS)
  271. NAPROXEN [Suspect]
     Active Substance: NAPROXEN
     Indication: Back pain
     Dosage: 500 MILLIGRAM, BID (1 EVERY 12 HOURS)
  272. NAPROXEN [Suspect]
     Active Substance: NAPROXEN
     Dosage: 250 MILLIGRAM, BID (1 EVERY 12 HOURS)
  273. NAPROXEN [Suspect]
     Active Substance: NAPROXEN
     Indication: Rheumatoid arthritis
     Dosage: 500 MILLIGRAM, BID (2 EVERY 1 DAY)
  274. NAPROXEN [Suspect]
     Active Substance: NAPROXEN
     Indication: Inflammation
     Dosage: 500 MILLIGRAM, QD (1 EVERY 1 DAY)
  275. NAPROXEN [Suspect]
     Active Substance: NAPROXEN
     Indication: Bursitis
  276. NAPROXEN [Suspect]
     Active Substance: NAPROXEN
     Indication: Back pain
     Dosage: 1000 MILLIGRAM, QD (1 EVERY 1 DAYS)
  277. NAPROXEN [Suspect]
     Active Substance: NAPROXEN
     Dosage: 250 MILLIGRAM, BID (2 EVERY 1 DAY)
  278. NAPROXEN [Suspect]
     Active Substance: NAPROXEN
  279. NAPROXEN [Suspect]
     Active Substance: NAPROXEN
     Dosage: 1000 MILLIGRAM, QD (1 EVERY 1 DAYS)
  280. NAPROXEN [Suspect]
     Active Substance: NAPROXEN
     Dosage: 500 MILLIGRAM, QD (1 EVERY 1 DAY)
  281. NAPROXEN [Suspect]
     Active Substance: NAPROXEN
     Dosage: 500 MILLIGRAM, BID (2 EVERY 1 DAY)
  282. NAPROXEN [Suspect]
     Active Substance: NAPROXEN
     Dosage: 250 MILLIGRAM, BID (1 EVERY 12 HOURS)
  283. NEOMYCIN SULFATE [Suspect]
     Active Substance: NEOMYCIN SULFATE
     Indication: Product used for unknown indication
  284. PANTOPRAZOLE SODIUM [Suspect]
     Active Substance: PANTOPRAZOLE SODIUM
     Indication: Product used for unknown indication
     Dosage: UNK, QD (EVERY1 DAYS)
  285. PREDNISONE [Suspect]
     Active Substance: PREDNISONE
     Indication: Rheumatoid arthritis
     Dosage: 150 MILLIGRAM, QD (1 EVERY 1 DAYS)
  286. PREDNISONE [Suspect]
     Active Substance: PREDNISONE
     Dosage: 150 MILLIGRAM, BID
  287. PREDNISONE [Suspect]
     Active Substance: PREDNISONE
     Dosage: 300 MILLIGRAM, QD
  288. PREDNISONE [Suspect]
     Active Substance: PREDNISONE
     Dosage: 15 MILLIGRAM, QD (1 EVERY 1 DAYS)
  289. PREDNISONE [Suspect]
     Active Substance: PREDNISONE
  290. SULFASALAZINE [Suspect]
     Active Substance: SULFASALAZINE
     Indication: Product used for unknown indication
  291. SULFASALAZINE [Suspect]
     Active Substance: SULFASALAZINE
     Dosage: 1 GRAM, QD  (1 EVERY 1 DAYS)
  292. TRIAMCINOLONE ACETONIDE [Suspect]
     Active Substance: TRIAMCINOLONE ACETONIDE
     Indication: Product used for unknown indication
  293. OXYCODONE AND ACETAMINOPHEN [Suspect]
     Active Substance: ACETAMINOPHEN\OXYCODONE HYDROCHLORIDE
     Indication: Product used for unknown indication
  294. HUMIRA [Suspect]
     Active Substance: ADALIMUMAB
     Indication: Drug therapy
  295. ESOMEPRAZOLE MAGNESIUM\NAPROXEN [Suspect]
     Active Substance: ESOMEPRAZOLE MAGNESIUM\NAPROXEN
     Indication: Rheumatoid arthritis
  296. ALENDRONIC ACID [Suspect]
     Active Substance: ALENDRONIC ACID
     Indication: Product used for unknown indication
  297. ALENDRONIC ACID [Suspect]
     Active Substance: ALENDRONIC ACID
  298. ACETAMINOPHEN\OXYCODONE HYDROCHLORIDE [Suspect]
     Active Substance: ACETAMINOPHEN\OXYCODONE HYDROCHLORIDE
     Indication: Product used for unknown indication
  299. ACETAMINOPHEN [Suspect]
     Active Substance: ACETAMINOPHEN
     Indication: Product used for unknown indication
  300. HYDROXYCHLOROQUINE [Suspect]
     Active Substance: HYDROXYCHLOROQUINE
     Indication: Product used for unknown indication
  301. RANITIDINE [Suspect]
     Active Substance: RANITIDINE
     Indication: Product used for unknown indication
     Dosage: 300 MILLIGRAM, QD (1 EVERY 1 DAYS)
  302. RANITIDINE [Suspect]
     Active Substance: RANITIDINE
     Indication: Product used for unknown indication
     Dosage: 150 MILLIGRAM, BID (2 EVERY 1 DAYS)
  303. SULFAMETHOXAZOLE [Suspect]
     Active Substance: SULFAMETHOXAZOLE
     Indication: Product used for unknown indication
  304. XELJANZ [Suspect]
     Active Substance: TOFACITINIB CITRATE
     Indication: Rheumatoid arthritis
     Dosage: 5 MILLIGRAM, BID (2 EVERY 1 DAY)
  305. HYDROXYCHLOROQUINE SULFATE [Concomitant]
     Active Substance: HYDROXYCHLOROQUINE SULFATE
     Indication: Product used for unknown indication
  306. HUMIRA [Concomitant]
     Active Substance: ADALIMUMAB
  307. Actin [Concomitant]
     Indication: Product used for unknown indication
  308. LEVOTHYROXINE [Concomitant]
     Active Substance: LEVOTHYROXINE
     Dosage: 175 MICROGRAM, QD
  309. LEVOTHYROXINE [Concomitant]
     Active Substance: LEVOTHYROXINE
  310. DEXILANT [Concomitant]
     Active Substance: DEXLANSOPRAZOLE
     Dosage: 60 MILLIGRAM, QD
  311. DEXILANT [Concomitant]
     Active Substance: DEXLANSOPRAZOLE
     Dosage: 60 MILLIGRAM, QD
  312. DEXILANT [Concomitant]
     Active Substance: DEXLANSOPRAZOLE
  313. CODEINE [Concomitant]
     Active Substance: CODEINE
     Indication: Product used for unknown indication
  314. CODEINE [Concomitant]
     Active Substance: CODEINE
  315. CELEBREX [Concomitant]
     Active Substance: CELECOXIB
  316. CELEBREX [Concomitant]
     Active Substance: CELECOXIB
  317. PLAQUENIL [Concomitant]
     Active Substance: HYDROXYCHLOROQUINE SULFATE
  318. FOLIC ACID [Concomitant]
     Active Substance: FOLIC ACID
  319. CANNABIS SATIVA FLOWERING TOP [Concomitant]
     Active Substance: CANNABIS SATIVA FLOWERING TOP
     Indication: Product used for unknown indication
     Dosage: 1 GRAM, QD
  320. HYDROXYCHLOROQUINE SULFATE [Concomitant]
     Active Substance: HYDROXYCHLOROQUINE SULFATE
     Indication: Product used for unknown indication
  321. DICLOFENAC [Concomitant]
     Active Substance: DICLOFENAC
     Indication: Product used for unknown indication
  322. ALENDRONIC ACID [Concomitant]
     Active Substance: ALENDRONIC ACID
  323. CALCIUM CARBONATE [Concomitant]
     Active Substance: CALCIUM CARBONATE
  324. DEPO-MEDROL [Concomitant]
     Active Substance: METHYLPREDNISOLONE ACETATE
  325. DOXYCYCLINE HYCLATE [Concomitant]
     Active Substance: DOXYCYCLINE HYCLATE
  326. ENBREL [Concomitant]
     Active Substance: ETANERCEPT
  327. ESOMEPRAZOLE MAGNESIUM [Concomitant]
     Active Substance: ESOMEPRAZOLE MAGNESIUM
  328. HYDROCORTISONE SODIUM SUCCINATE [Concomitant]
     Active Substance: HYDROCORTISONE SODIUM SUCCINATE
  329. IMURAN [Concomitant]
     Active Substance: AZATHIOPRINE
  330. CANNABIS SATIVA SUBSP. INDICA TOP [Concomitant]
     Active Substance: CANNABIS SATIVA SUBSP. INDICA TOP

REACTIONS (114)
  - Antinuclear antibody positive [Fatal]
  - Atelectasis [Fatal]
  - Bursitis [Fatal]
  - Crepitations [Fatal]
  - Cushingoid [Fatal]
  - Dry eye [Fatal]
  - Dry mouth [Fatal]
  - Eye irritation [Fatal]
  - Eye pain [Fatal]
  - Feeling jittery [Fatal]
  - Fibromyalgia [Fatal]
  - Flank pain [Fatal]
  - Impaired work ability [Fatal]
  - Interstitial lung disease [Fatal]
  - Joint effusion [Fatal]
  - Joint swelling [Fatal]
  - Lung disorder [Fatal]
  - Malaise [Fatal]
  - Musculoskeletal stiffness [Fatal]
  - Nodule [Fatal]
  - Neoplasm malignant [Fatal]
  - Ocular hyperaemia [Fatal]
  - Pain [Fatal]
  - Pain in extremity [Fatal]
  - Photophobia [Fatal]
  - Pleuritic pain [Fatal]
  - Red blood cell count decreased [Fatal]
  - Rheumatoid nodule [Fatal]
  - Scleritis [Fatal]
  - Swelling face [Fatal]
  - Synovial cyst [Fatal]
  - Synovial disorder [Fatal]
  - Tenderness [Fatal]
  - Tenosynovitis stenosans [Fatal]
  - Thrombosis [Fatal]
  - Ulcer [Fatal]
  - Visual impairment [Fatal]
  - Wheezing [Fatal]
  - Conjunctivitis [Fatal]
  - Musculoskeletal pain [Fatal]
  - Pneumonia [Fatal]
  - Infection [Fatal]
  - Peripheral swelling [Fatal]
  - Rheumatoid arthritis [Fatal]
  - Haemoglobin decreased [Fatal]
  - Skin ulcer [Fatal]
  - Abdominal pain [Fatal]
  - Erythema [Fatal]
  - Allergy to chemicals [Fatal]
  - Bone density decreased [Fatal]
  - C-reactive protein increased [Fatal]
  - Deformity [Fatal]
  - Liver disorder [Fatal]
  - Pulmonary toxicity [Fatal]
  - Feeling abnormal [Fatal]
  - Hand deformity [Fatal]
  - Joint range of motion decreased [Fatal]
  - Muscular weakness [Fatal]
  - Rash maculo-papular [Fatal]
  - Rash pruritic [Fatal]
  - Tenosynovitis [Fatal]
  - Upper respiratory tract infection [Fatal]
  - Arthritis [Fatal]
  - Back pain [Fatal]
  - Inflammation [Fatal]
  - Arthropathy [Fatal]
  - Drug hypersensitivity [Fatal]
  - Hepatotoxicity [Fatal]
  - Condition aggravated [Fatal]
  - Joint injury [Fatal]
  - Joint stiffness [Fatal]
  - Gastrointestinal toxicity [Fatal]
  - Swelling [Fatal]
  - Arthralgia [Fatal]
  - Dyspnoea [Fatal]
  - Rash [Fatal]
  - Pruritus [Fatal]
  - Nausea [Fatal]
  - Fatigue [Fatal]
  - Myalgia [Fatal]
  - Diarrhoea [Fatal]
  - Dizziness [Fatal]
  - Quality of life decreased [Fatal]
  - White blood cell count decreased [Fatal]
  - Weight decreased [Fatal]
  - Ulcer [Fatal]
  - Type 2 diabetes mellitus [Fatal]
  - Systemic lupus erythematosus [Fatal]
  - Synovial fluid analysis [Fatal]
  - Sinusitis [Fatal]
  - Sciatica [Fatal]
  - Road traffic accident [Fatal]
  - Red blood cell sedimentation rate decreased [Fatal]
  - Pyrexia [Fatal]
  - Facet joint syndrome [Fatal]
  - Folliculitis [Fatal]
  - Glossodynia [Fatal]
  - Haemoglobin increased [Fatal]
  - Helicobacter infection [Fatal]
  - Duodenal ulcer perforation [Fatal]
  - Hepatic enzyme decreased [Fatal]
  - Hypertension [Fatal]
  - Hypoaesthesia [Fatal]
  - Impaired healing [Fatal]
  - Infusion related reaction [Fatal]
  - Drug intolerance [Fatal]
  - General physical health deterioration [Fatal]
  - Therapy non-responder [Fatal]
  - Therapeutic product effect decreased [Fatal]
  - Contraindicated product administered [Fatal]
  - Therapeutic product effect incomplete [Fatal]
  - Drug ineffective [Fatal]
  - Off label use [Fatal]
  - Treatment failure [Fatal]

NARRATIVE: CASE EVENT DATE: 20080101
